FAERS Safety Report 11419339 (Version 1)
Quarter: 2015Q3

REPORT INFORMATION
  Report Type: Spontaneous
  Country: US (occurrence: None)
  Receive Date: 20150825
  Receipt Date: 20150825
  Transmission Date: 20151125
  Serious: Yes (Life-Threatening, Hospitalization)
  Sender: FDA-Public Use
  Company Number: None

PATIENT
  Age: 78 Year
  Sex: Female
  Weight: 73.5 kg

DRUGS (12)
  1. ZEBETA [Concomitant]
     Active Substance: BISOPROLOL FUMARATE
  2. SAXAGLIPTIN [Concomitant]
     Active Substance: SAXAGLIPTIN
  3. AMARYL [Concomitant]
     Active Substance: GLIMEPIRIDE
  4. HYDROCHLOROTHIAZIDE. [Concomitant]
     Active Substance: HYDROCHLOROTHIAZIDE
  5. AMLODIPINE [Concomitant]
     Active Substance: AMLODIPINE BESYLATE
  6. YKIRUC [Concomitant]
  7. ACTOS [Concomitant]
     Active Substance: PIOGLITAZONE HYDROCHLORIDE
  8. SPIRONOLACTONE. [Concomitant]
     Active Substance: SPIRONOLACTONE
  9. IRBESARTAN. [Concomitant]
     Active Substance: IRBESARTAN
  10. METFORMIN [Concomitant]
     Active Substance: METFORMIN HYDROCHLORIDE
  11. INVOKANA [Suspect]
     Active Substance: CANAGLIFLOZIN
     Indication: DIABETES MELLITUS
     Route: 048
     Dates: start: 20150726, end: 20150823
  12. PRAVASTATIN [Concomitant]
     Active Substance: PRAVASTATIN\PRAVASTATIN SODIUM

REACTIONS (2)
  - Acute kidney injury [None]
  - Urosepsis [None]

NARRATIVE: CASE EVENT DATE: 20150823
